FAERS Safety Report 5596004-6 (Version None)
Quarter: 2007Q4

REPORT INFORMATION
  Report Type: 
  Country: None (occurrence: None)
  Receive Date: 20071218
  Receipt Date: 20070925
  Transmission Date: 20080405
  Serious: Yes (Hospitalization)
  Sender: FDA-Public Use
  Company Number: 2007080290

PATIENT
  Age: 56 Year
  Sex: Male

DRUGS (5)
  1. BEXTRA [Suspect]
     Indication: ARTHRITIS
     Dosage: 20 MG (20 MG,1 IN 1 D),ORAL
     Route: 048
     Dates: start: 20020808, end: 20040624
  2. BEXTRA [Suspect]
     Indication: JOINT STIFFNESS
     Dosage: 20 MG (20 MG,1 IN 1 D),ORAL
     Route: 048
     Dates: start: 20020808, end: 20040624
  3. CELEBREX [Suspect]
  4. VOLTAREN [Suspect]
  5. VIOXX [Suspect]

REACTIONS (3)
  - ABDOMINAL PAIN UPPER [None]
  - ASTHENIA [None]
  - MYOCARDIAL INFARCTION [None]
